FAERS Safety Report 21795777 (Version 1)
Quarter: 2022Q4

REPORT INFORMATION
  Report Type: Spontaneous
  Country: US (occurrence: US)
  Receive Date: 20221229
  Receipt Date: 20221229
  Transmission Date: 20230112
  Serious: Yes (Other)
  Sender: FDA-Public Use
  Company Number: US-BRISTOL-MYERS SQUIBB COMPANY-2022-159722

PATIENT
  Age: 63 Year
  Sex: Female

DRUGS (1)
  1. ELIQUIS [Suspect]
     Active Substance: APIXABAN
     Indication: Thrombosis prophylaxis
     Dosage: TWICE A DAY
     Route: 048
     Dates: start: 202212

REACTIONS (11)
  - Malaise [Unknown]
  - Fatigue [Unknown]
  - Swollen tongue [Recovered/Resolved]
  - Oral discomfort [Unknown]
  - Pulmonary oedema [Unknown]
  - Oral pain [Unknown]
  - Weight increased [Unknown]
  - Feeling abnormal [Unknown]
  - Depression [Unknown]
  - Thinking abnormal [Unknown]
  - Atrial fibrillation [Unknown]

NARRATIVE: CASE EVENT DATE: 20221201
